FAERS Safety Report 17258784 (Version 1)
Quarter: 2020Q1

REPORT INFORMATION
  Report Type: Spontaneous
  Country: US (occurrence: US)
  Receive Date: 20200110
  Receipt Date: 20200110
  Transmission Date: 20200409
  Serious: No
  Sender: FDA-Public Use
  Company Number: US-ASTRAZENECA-2020SE01619

PATIENT
  Sex: Female

DRUGS (6)
  1. TIMOLOL GEL SOL [Concomitant]
  2. AMOXICILLIN SUS [Concomitant]
     Dosage: 80MG/ML
  3. SYNAGIS [Suspect]
     Active Substance: PALIVIZUMAB
     Indication: SMALL FOR DATES BABY
     Route: 030
     Dates: start: 20181127, end: 20190226
  4. VENTOLIN HFA AER [Concomitant]
  5. FLOVENT HFA AER [Concomitant]
  6. SYNAGIS [Suspect]
     Active Substance: PALIVIZUMAB
     Indication: SMALL FOR DATES BABY
     Route: 030
     Dates: start: 20191204

REACTIONS (2)
  - Respiratory syncytial virus infection [Not Recovered/Not Resolved]
  - Inappropriate schedule of product administration [Not Recovered/Not Resolved]
